FAERS Safety Report 12537755 (Version 2)
Quarter: 2016Q4

REPORT INFORMATION
  Report Type: Spontaneous
  Country: US (occurrence: US)
  Receive Date: 20160707
  Receipt Date: 20161014
  Transmission Date: 20170207
  Serious: Yes (Other)
  Sender: FDA-Public Use
  Company Number: US-ELI_LILLY_AND_COMPANY-US201607000315

PATIENT
  Age: 64 Year
  Sex: Male
  Weight: 88 kg

DRUGS (10)
  1. ASACOL [Concomitant]
     Active Substance: MESALAMINE
     Dosage: 1 DF, BID
     Route: 048
     Dates: start: 20140101
  2. PRAVASTATIN. [Concomitant]
     Active Substance: PRAVASTATIN
     Dosage: 1 DF, QD
     Route: 048
  3. EPIPEN [Concomitant]
     Active Substance: EPINEPHRINE
     Indication: ANAPHYLACTIC REACTION
     Dosage: 0.3 ML, PRN
     Route: 030
     Dates: start: 20140101
  4. FORTEO [Suspect]
     Active Substance: TERIPARATIDE
     Indication: PRODUCT USED FOR UNKNOWN INDICATION
     Dosage: 20 UG, UNKNOWN
     Route: 065
     Dates: start: 20150515, end: 20160628
  5. GLUCOSAMINE SULFATE [Concomitant]
     Active Substance: GLUCOSAMINE SULFATE
  6. FEXOFENADINE [Concomitant]
     Active Substance: FEXOFENADINE\FEXOFENADINE HYDROCHLORIDE
     Dosage: 1 DF, QD
     Route: 048
     Dates: start: 20140101
  7. KEPPRA [Suspect]
     Active Substance: LEVETIRACETAM
     Indication: SEIZURE
     Dosage: UNK, UNKNOWN
     Route: 065
  8. CALCIUM CITRATE [Concomitant]
     Active Substance: CALCIUM CITRATE
     Dosage: UNK MG, UNK
     Dates: start: 20140101, end: 20160628
  9. NITROSTAT [Concomitant]
     Active Substance: NITROGLYCERIN
     Dosage: UNK, PRN
     Route: 060
     Dates: start: 20140101
  10. COENZYME Q10 [Concomitant]
     Active Substance: UBIDECARENONE
     Dosage: UNK
     Dates: start: 20140530

REACTIONS (6)
  - Seizure [Unknown]
  - Seizure [Unknown]
  - Pain [Recovered/Resolved]
  - Fall [Unknown]
  - Thoracic vertebral fracture [Unknown]
  - Rash [Unknown]

NARRATIVE: CASE EVENT DATE: 201505
